FAERS Safety Report 4933192-6 (Version None)
Quarter: 2006Q1

REPORT INFORMATION
  Report Type: 
  Country: None (occurrence: None)
  Receive Date: 20060111
  Receipt Date: 20041207
  Transmission Date: 20060701
  Serious: Yes (Hospitalization)
  Sender: FDA-Public Use
  Company Number: A001-002-006316

PATIENT
  Age: 74 Year
  Sex: Female

DRUGS (3)
  1. ARICEPT [Suspect]
     Indication: AMNESIA
     Dosage: 10 MG, 1 IN 1 D, ORAL
     Route: 048
     Dates: start: 20041101, end: 20041206
  2. PRAVACHOL [Concomitant]
  3. OVER THE COUNTER MEDS [Concomitant]

REACTIONS (1)
  - CONVULSION [None]
